FAERS Safety Report 20771452 (Version 1)
Quarter: 2022Q2

REPORT INFORMATION
  Report Type: Spontaneous
  Country: AU (occurrence: AU)
  Receive Date: 20220429
  Receipt Date: 20220429
  Transmission Date: 20220721
  Serious: Yes (Hospitalization, Other)
  Sender: FDA-Public Use
  Company Number: AU-BAXTER-2022BAX009342

PATIENT
  Age: 93 Year
  Sex: Male

DRUGS (8)
  1. DOXORUBICIN HYDROCHLORIDE [Suspect]
     Active Substance: DOXORUBICIN HYDROCHLORIDE
     Indication: Diffuse large B-cell lymphoma
     Dosage: D1
     Route: 065
     Dates: end: 202005
  2. DOXORUBICIN HYDROCHLORIDE [Suspect]
     Active Substance: DOXORUBICIN HYDROCHLORIDE
     Route: 065
  3. CYCLOPHOSPHAMIDE [Suspect]
     Active Substance: CYCLOPHOSPHAMIDE
     Indication: Diffuse large B-cell lymphoma
     Route: 042
     Dates: end: 202005
  4. ONCOVIN [Suspect]
     Active Substance: VINCRISTINE SULFATE
     Indication: Diffuse large B-cell lymphoma
     Dosage: D1
     Route: 042
     Dates: end: 202005
  5. RITUXIMAB [Suspect]
     Active Substance: RITUXIMAB
     Indication: Diffuse large B-cell lymphoma
     Route: 042
  6. PREDNISOLONE [Suspect]
     Active Substance: PREDNISOLONE
     Indication: Diffuse large B-cell lymphoma
     Dosage: D1-5
     Route: 065
  7. PALONOSETRON [Suspect]
     Active Substance: PALONOSETRON
     Indication: Diffuse large B-cell lymphoma
     Route: 042
     Dates: end: 202005
  8. LORATADINE [Suspect]
     Active Substance: LORATADINE
     Indication: Product used for unknown indication
     Route: 048
     Dates: end: 202005

REACTIONS (4)
  - Acute hepatitis B [Unknown]
  - Hepatitis B reactivation [Unknown]
  - Jaundice [Unknown]
  - Abdominal pain [Unknown]
